FAERS Safety Report 8191175-X (Version None)
Quarter: 2012Q1

REPORT INFORMATION
  Report Type: 
  Country: None (occurrence: None)
  Receive Date: 20120221
  Receipt Date: 20111220
  Transmission Date: 20120608
  Serious: No
  Sender: FDA-Public Use
  Company Number: 048480

PATIENT
  Sex: Female
  Weight: 45 kg

DRUGS (3)
  1. TRILEPTAL [Concomitant]
  2. DILANTIN [Concomitant]
  3. LACOSAMIDE [Suspect]
     Dosage: (50 MG BID ORAL)
     Route: 048
     Dates: start: 20110620

REACTIONS (2)
  - INCREASED APPETITE [None]
  - WEIGHT INCREASED [None]
